FAERS Safety Report 9933222 (Version 1)
Quarter: 2014Q1

REPORT INFORMATION
  Report Type: Report from Study
  Country: US (occurrence: US)
  Receive Date: 20140228
  Receipt Date: 20140228
  Transmission Date: 20141002
  Serious: No
  Sender: FDA-Public Use
  Company Number: US-MYLANLABS-2013S1000744

PATIENT
  Age: 17 Year
  Sex: Male

DRUGS (2)
  1. AMNESTEEM CAPSULES [Suspect]
     Indication: ACNE
     Route: 048
     Dates: start: 20121227
  2. CLARAVIS [Suspect]
     Indication: ACNE
     Route: 048
     Dates: end: 20121226

REACTIONS (1)
  - Urticaria [Not Recovered/Not Resolved]
